FAERS Safety Report 7585660-9 (Version None)
Quarter: 2011Q2

REPORT INFORMATION
  Report Type: 
  Country: None (occurrence: None)
  Receive Date: 20110624
  Receipt Date: 20110609
  Transmission Date: 20111010
  Serious: Yes (Life-Threatening, Hospitalization)
  Sender: FDA-Public Use
  Company Number: 2011MA007692

PATIENT
  Age: 61 Year
  Sex: Male

DRUGS (2)
  1. FLUOXETINE [Suspect]
     Indication: DEPRESSION
     Dosage: 20MG, PO
     Route: 048
     Dates: start: 20110411, end: 20110414
  2. AMITRIPTYLINE HCL [Concomitant]

REACTIONS (5)
  - LACERATION [None]
  - MENTAL STATUS CHANGES [None]
  - INTENTIONAL SELF-INJURY [None]
  - TRAUMATIC LIVER INJURY [None]
  - HEART INJURY [None]
